FAERS Safety Report 19180599 (Version 2)
Quarter: 2021Q2

REPORT INFORMATION
  Report Type: Report from Study
  Country: None (occurrence: US)
  Receive Date: 20210426
  Receipt Date: 20210505
  Transmission Date: 20210717
  Serious: Yes (Hospitalization, Other)
  Sender: FDA-Public Use
  Company Number: US-ABBVIE-21K-163-3868855-00

PATIENT
  Sex: Female

DRUGS (10)
  1. COVID?19 VACCINE NOS. [Concomitant]
     Active Substance: COVID-19 VACCINE NOS
     Route: 030
     Dates: start: 20210423, end: 20210423
  2. METOPROLOL. [Concomitant]
     Active Substance: METOPROLOL
     Indication: PRODUCT USED FOR UNKNOWN INDICATION
  3. HUMIRA [Suspect]
     Active Substance: ADALIMUMAB
     Indication: UVEITIS
     Dosage: CITRATE FREE
     Route: 058
     Dates: start: 2017
  4. TOPIRAMATE. [Concomitant]
     Active Substance: TOPIRAMATE
     Indication: PRODUCT USED FOR UNKNOWN INDICATION
  5. ELIQUIS [Concomitant]
     Active Substance: APIXABAN
     Indication: PRODUCT USED FOR UNKNOWN INDICATION
  6. COVID?19 VACCINE NOS. [Concomitant]
     Active Substance: COVID-19 VACCINE NOS
     Indication: COVID-19 IMMUNISATION
     Route: 030
     Dates: start: 20210402, end: 20210402
  7. LOSARTAN. [Concomitant]
     Active Substance: LOSARTAN
     Indication: PRODUCT USED FOR UNKNOWN INDICATION
  8. FOLIC ACID. [Concomitant]
     Active Substance: FOLIC ACID
     Indication: PRODUCT USED FOR UNKNOWN INDICATION
  9. FOLATE [Concomitant]
     Active Substance: FOLATE SODIUM
     Indication: PRODUCT USED FOR UNKNOWN INDICATION
  10. VITAMIN D3 [Concomitant]
     Active Substance: CHOLECALCIFEROL
     Indication: PRODUCT USED FOR UNKNOWN INDICATION

REACTIONS (10)
  - Choking [Unknown]
  - Uterine haemorrhage [Recovering/Resolving]
  - Cough [Recovered/Resolved]
  - Vascular malformation [Recovered/Resolved]
  - Heart disease congenital [Unknown]
  - Procedural pain [Recovered/Resolved]
  - Right aortic arch [Recovered/Resolved]
  - Protein total increased [Not Recovered/Not Resolved]
  - Unevaluable event [Unknown]
  - Vaginal haemorrhage [Recovering/Resolving]

NARRATIVE: CASE EVENT DATE: 2019
